FAERS Safety Report 6188025-X (Version None)
Quarter: 2009Q2

REPORT INFORMATION
  Report Type: 
  Country: None (occurrence: None)
  Receive Date: 20090513
  Receipt Date: 20090504
  Transmission Date: 20091009
  Serious: Yes (Other)
  Sender: FDA-Public Use
  Company Number: PHEH2009US03630

PATIENT
  Sex: Female
  Weight: 140.5 kg

DRUGS (5)
  1. ZOMETA [Suspect]
     Indication: MULTIPLE MYELOMA
     Dosage: 3.5 MG, EVERY 28 DAYS
     Route: 042
     Dates: start: 20081201
  2. STEROIDS NOS [Concomitant]
  3. REVLIMID [Concomitant]
     Dosage: 25 MG, QD
     Route: 048
     Dates: start: 20081201, end: 20090125
  4. REVLIMID [Concomitant]
     Dosage: 15 MG, QD
     Route: 048
     Dates: start: 20090125, end: 20090222
  5. REVLIMID [Concomitant]
     Dosage: 10 MG, QD
     Route: 048
     Dates: start: 20090222

REACTIONS (3)
  - BONE DISORDER [None]
  - BONE EROSION [None]
  - OSTEONECROSIS [None]
